FAERS Safety Report 8649989 (Version 4)
Quarter: 2012Q4

REPORT INFORMATION
  Report Type: Spontaneous
  Country: None (occurrence: None)
  Receive Date: 20120622
  Receipt Date: 20120910
  Transmission Date: 20130627
  Serious: Yes (Other)
  Sender: FDA-Public Use
  Company Number: AUR-APL-2012-02655

PATIENT
  Age: 16 Year
  Sex: Male
  Weight: 56.4 kg

DRUGS (15)
  1. OLANZAPINE [Suspect]
     Indication: PSYCHOTIC DISORDER
     Route: 048
     Dates: start: 20120524
  2. OLANZAPINE [Suspect]
     Indication: PSYCHOTIC DISORDER
     Dates: start: 20120522
  3. ZYPREXA [Suspect]
     Indication: PSYCHOTIC DISORDER
     Dosage: (5 mg, 2 in 1D)
     Route: 030
     Dates: start: 20120521, end: 20120522
  4. ZYPREXA [Suspect]
     Indication: MENTAL DISORDER
     Dosage: (5 mg, 2 in 1D)
     Route: 030
     Dates: start: 20120521, end: 20120522
  5. ZYPREXA [Suspect]
     Indication: MANIC STATE
     Dosage: (5 mg, 2 in 1D)
     Route: 030
     Dates: start: 20120521, end: 20120522
  6. ZYPREXA [Suspect]
     Indication: PSYCHOTIC DISORDER
     Route: 030
     Dates: start: 20120522
  7. ZYPREXA [Suspect]
     Indication: MENTAL DISORDER
     Route: 030
     Dates: start: 20120522
  8. ZYPREXA [Suspect]
     Indication: MANIC STATE
     Route: 030
     Dates: start: 20120522
  9. ZYPREXA [Suspect]
     Indication: PSYCHOTIC DISORDER
     Route: 048
  10. ZYPREXA [Suspect]
     Indication: MENTAL DISORDER
     Route: 048
  11. ZYPREXA [Suspect]
     Indication: MANIC STATE
     Route: 048
  12. ZYPREXA [Suspect]
     Indication: PSYCHOTIC DISORDER
     Route: 030
     Dates: start: 20120523
  13. ZYPREXA [Suspect]
     Indication: MENTAL DISORDER
     Route: 030
     Dates: start: 20120523
  14. ZYPREXA [Suspect]
     Indication: MANIC STATE
     Route: 030
     Dates: start: 20120523
  15. ZUCLOPENTHIXOL [Concomitant]

REACTIONS (9)
  - Myocarditis [None]
  - Pericarditis [None]
  - Electrocardiogram ST segment elevation [None]
  - Electrocardiogram T wave inversion [None]
  - Blood potassium increased [None]
  - Troponin T increased [None]
  - Blood thrombin abnormal [None]
  - Psychotic disorder [None]
  - Left ventricular hypertrophy [None]
